FAERS Safety Report 4928149-5 (Version None)
Quarter: 2006Q1

REPORT INFORMATION
  Report Type: 
  Country: None (occurrence: None)
  Receive Date: 20060223
  Receipt Date: 20060209
  Transmission Date: 20060701
  Serious: Yes (Hospitalization)
  Sender: FDA-Public Use
  Company Number: 2005EU002680

PATIENT
  Age: 61 Year
  Sex: Male

DRUGS (6)
  1. FK506 (TACROLIMUS) CAPSULE [Suspect]
     Indication: LIVER TRANSPLANT
     Dosage: 2 MG, ORAL
     Route: 048
     Dates: start: 20050703
  2. MYCOPHENOLATE MOFETIL(MYCOPHENOLATE MOFETIL) [Suspect]
     Indication: LIVER TRANSPLANT
     Dosage: 1000 MG, UID/QD, IV NOS
     Route: 042
     Dates: start: 20050628, end: 20050703
  3. MYCOPHENOLATE MOFETIL(MYCOPHENOLATE MOFETIL) [Suspect]
     Indication: LIVER TRANSPLANT
     Dosage: 1000 MG, UID/QD, IV NOS
     Route: 042
     Dates: start: 20050704
  4. DACLIZUMAB (DACLIZUMAB) [Suspect]
     Indication: LIVER TRANSPLANT
     Dosage: 126 MG, UID/QD, IV NOS
     Route: 042
     Dates: start: 20050628, end: 20050705
  5. METHYLPREDNISOLONE [Suspect]
     Indication: LIVER TRANSPLANT
     Dosage: 4 MG, UID/QD
     Dates: start: 20050628, end: 20050921
  6. LORMETAZEPAM (LORMETAZEPAM) [Concomitant]

REACTIONS (2)
  - BACK PAIN [None]
  - OSTEOPENIA [None]
